FAERS Safety Report 9319962 (Version 1)
Quarter: 2013Q2

REPORT INFORMATION
  Report Type: Spontaneous
  Country: US (occurrence: US)
  Receive Date: 20130530
  Receipt Date: 20130530
  Transmission Date: 20140414
  Serious: Yes (Other)
  Sender: FDA-Public Use
  Company Number: PHEH2013US011776

PATIENT
  Sex: Male

DRUGS (6)
  1. TEKTURNA [Suspect]
  2. EXFORGE [Suspect]
  3. METFORMIN [Concomitant]
  4. NORCO [Concomitant]
  5. CRESTOR [Concomitant]
  6. ZOLPIDEM [Concomitant]

REACTIONS (2)
  - Back injury [Unknown]
  - Hypertension [Unknown]
